FAERS Safety Report 9394929 (Version 2)
Quarter: 2013Q3

REPORT INFORMATION
  Report Type: Spontaneous
  Country: FR (occurrence: FR)
  Receive Date: 20130711
  Receipt Date: 20130722
  Transmission Date: 20140515
  Serious: Yes (Other)
  Sender: FDA-Public Use
  Company Number: FR-ELI_LILLY_AND_COMPANY-FR201307000195

PATIENT
  Age: 33 Year
  Sex: Female

DRUGS (1)
  1. ZYPADHERA [Suspect]
     Dosage: UNK UNK, EVERY 15 DAYS
     Route: 030

REACTIONS (2)
  - Sedation [Recovered/Resolved]
  - Hypotension [Recovered/Resolved]
